FAERS Safety Report 23347079 (Version 3)
Quarter: 2024Q1

REPORT INFORMATION
  Report Type: Spontaneous
  Country: CZ (occurrence: None)
  Receive Date: 20231228
  Receipt Date: 20240118
  Transmission Date: 20240409
  Serious: Yes (Other)
  Sender: FDA-Public Use
  Company Number: 2023A293508

PATIENT
  Age: 44 Year
  Sex: Female

DRUGS (9)
  1. QUETIAPINE [Suspect]
     Active Substance: QUETIAPINE
     Indication: Schizophrenia
     Dosage: 200 MG, QD (AFTER 0-0-1)
  2. QUETIAPINE [Suspect]
     Active Substance: QUETIAPINE
     Indication: Schizophrenia
     Dosage: INCREASED TO 400 MG DAILY
  3. HALOPERIDOL [Suspect]
     Active Substance: HALOPERIDOL
     Indication: Schizophrenia
     Dosage: UNK
     Route: 048
  4. BIPERIDEN [Suspect]
     Active Substance: BIPERIDEN
     Indication: Schizophrenia
  5. RISPERIDONE [Suspect]
     Active Substance: RISPERIDONE
     Indication: Schizophrenia
     Dosage: 5 MG, QD
  6. ZUCLOPENTHIXOL [Suspect]
     Active Substance: ZUCLOPENTHIXOL
     Indication: Schizophrenia
     Dosage: 1 AMP EVERY 14 DAYS
     Route: 030
  7. ARIPIPRAZOLE [Suspect]
     Active Substance: ARIPIPRAZOLE
     Indication: Schizophrenia
     Dosage: 15 MG, QD
     Route: 048
  8. ARIPIPRAZOLE [Suspect]
     Active Substance: ARIPIPRAZOLE
     Indication: Schizophrenia
     Dosage: 30 MG, QD
     Route: 048
  9. ARIPIPRAZOLE [Suspect]
     Active Substance: ARIPIPRAZOLE
     Indication: Schizophrenia
     Dosage: 15 MG, QD
     Route: 048

REACTIONS (6)
  - Hallucination, auditory [Recovered/Resolved]
  - CYP2D6 polymorphism [Unknown]
  - CYP2C19 polymorphism [Unknown]
  - Asthenia [Recovered/Resolved]
  - Adverse event [Unknown]
  - Fatigue [Recovered/Resolved]
